FAERS Safety Report 13565626 (Version 1)
Quarter: 2017Q2

REPORT INFORMATION
  Report Type: Spontaneous
  Country: US (occurrence: US)
  Receive Date: 20170519
  Receipt Date: 20170519
  Transmission Date: 20170830
  Serious: No
  Sender: FDA-Public Use
  Company Number: US-BION-20160025

PATIENT
  Sex: Female

DRUGS (1)
  1. IBUPROFEN CAPSULES, 200 MG [Suspect]
     Active Substance: IBUPROFEN
     Route: 048
     Dates: start: 20160202, end: 20160227

REACTIONS (1)
  - Vomiting [Unknown]
